FAERS Safety Report 12738179 (Version 2)
Quarter: 2018Q2

REPORT INFORMATION
  Report Type: Spontaneous
  Country: US (occurrence: US)
  Receive Date: 20160912
  Receipt Date: 20180515
  Transmission Date: 20180711
  Serious: No
  Sender: FDA-Public Use
  Company Number: US-SA-2016SA124384

PATIENT
  Age: 62 Year
  Sex: Male

DRUGS (4)
  1. SOLOSTAR [Concomitant]
     Active Substance: DEVICE
     Dates: start: 201606
  2. SOLOSTAR [Concomitant]
     Active Substance: DEVICE
     Dosage: FREQUENCY : AFTER MEALS
     Dates: start: 201606
  3. TOUJEO [Suspect]
     Active Substance: INSULIN GLARGINE
     Dosage: DOSE:28 UNIT(S)
     Route: 065
     Dates: start: 201606
  4. APIDRA SOLOSTAR [Suspect]
     Active Substance: INSULIN GLULISINE
     Dosage: FREQUENCY : AFTER MEALS DOSE:3 UNIT(S)
     Route: 065
     Dates: start: 201606

REACTIONS (1)
  - Abdominal discomfort [Unknown]

NARRATIVE: CASE EVENT DATE: 201606
